FAERS Safety Report 4752485-9 (Version None)
Quarter: 2005Q3

REPORT INFORMATION
  Report Type: 
  Country: None (occurrence: None)
  Receive Date: 20050825
  Receipt Date: 20050818
  Transmission Date: 20060218
  Serious: Yes (Hospitalization)
  Sender: FDA-Public Use
  Company Number: BG-ROCHE-414771

PATIENT
  Age: 55 Year
  Sex: Female
  Weight: 56 kg

DRUGS (4)
  1. PEGASYS [Suspect]
     Route: 058
     Dates: start: 20050715, end: 20050722
  2. PEGASYS [Suspect]
     Route: 058
     Dates: start: 20050729, end: 20050812
  3. PEGASYS [Suspect]
     Route: 058
     Dates: start: 20050819
  4. COPEGUS [Concomitant]
     Route: 048
     Dates: start: 20050617

REACTIONS (2)
  - LEUKOPENIA [None]
  - THROMBOSIS [None]
